FAERS Safety Report 17237108 (Version 12)
Quarter: 2020Q4

REPORT INFORMATION
  Report Type: Spontaneous
  Country: US (occurrence: US)
  Receive Date: 20200106
  Receipt Date: 20201012
  Transmission Date: 20210113
  Serious: Yes (Hospitalization, Other)
  Sender: FDA-Public Use
  Company Number: US-PFIZER INC-2019550913

PATIENT
  Age: 65 Year
  Sex: Female
  Weight: 107 kg

DRUGS (7)
  1. LACTOSE [Suspect]
     Active Substance: LACTOSE
     Dosage: UNK
  2. IBRANCE [Suspect]
     Active Substance: PALBOCICLIB
     Dosage: 125 MG, ONCE DAILY
     Route: 048
     Dates: start: 2020, end: 2020
  3. LETROZOLE. [Concomitant]
     Active Substance: LETROZOLE
     Dosage: 2.5 MG, DAILY
     Route: 048
  4. VITAMIN C [Concomitant]
     Active Substance: ASCORBIC ACID
     Dosage: 1500 MG, DAILY [UP HER VITAMIN C TO 1500MG DAILY]
  5. GELATIN [Suspect]
     Active Substance: GELATIN
     Dosage: UNK
  6. IBRANCE [Suspect]
     Active Substance: PALBOCICLIB
     Dosage: 125 MG, CYCLIC (DAILY 21 DAYS AND OFF FOR 7 DAYS)
     Route: 048
     Dates: start: 2020
  7. IBRANCE [Suspect]
     Active Substance: PALBOCICLIB
     Indication: BREAST CANCER METASTATIC
     Dosage: 125 MG, ONCE DAILY
     Route: 048
     Dates: start: 20180915, end: 2020

REACTIONS (10)
  - Toothache [Unknown]
  - White blood cell count decreased [Not Recovered/Not Resolved]
  - Feeling abnormal [Unknown]
  - Oropharyngeal discomfort [Recovered/Resolved]
  - Muscle twitching [Unknown]
  - Neoplasm progression [Unknown]
  - Arthritis [Unknown]
  - Pleural effusion [Recovered/Resolved]
  - Drug hypersensitivity [Unknown]
  - Allergic reaction to excipient [Unknown]

NARRATIVE: CASE EVENT DATE: 202001
